FAERS Safety Report 19520510 (Version 1)
Quarter: 2021Q3

REPORT INFORMATION
  Report Type: Spontaneous
  Country: US (occurrence: US)
  Receive Date: 20210712
  Receipt Date: 20210712
  Transmission Date: 20211014
  Serious: No
  Sender: FDA-Public Use
  Company Number: US-FOUNDATIONCONSUMERHC-2021-US-012102

PATIENT
  Age: 31 Year
  Sex: Female
  Weight: 81.65 kg

DRUGS (1)
  1. PLAN B ONE?STEP [Suspect]
     Active Substance: LEVONORGESTREL
     Indication: POST COITAL CONTRACEPTION
     Dosage: TAKE ACTION 1.5MG ON 13?MAY?2021, THEN PLAN B 1.5MG ON 20?MAY?2021
     Route: 048
     Dates: start: 20210513, end: 20210520

REACTIONS (1)
  - Breast tenderness [Not Recovered/Not Resolved]

NARRATIVE: CASE EVENT DATE: 20210531
